FAERS Safety Report 25107018 (Version 1)
Quarter: 2025Q1

REPORT INFORMATION
  Report Type: Spontaneous
  Country: CZ (occurrence: CZ)
  Receive Date: 20250321
  Receipt Date: 20250321
  Transmission Date: 20250408
  Serious: Yes (Hospitalization, Other)
  Sender: NOVARTIS
  Company Number: CZ-002147023-NVSC2025CZ045685

PATIENT
  Sex: Female

DRUGS (2)
  1. OFATUMUMAB [Suspect]
     Active Substance: OFATUMUMAB
     Indication: Product used for unknown indication
     Route: 065
     Dates: start: 202412
  2. OFATUMUMAB [Suspect]
     Active Substance: OFATUMUMAB
     Route: 065
     Dates: start: 202502

REACTIONS (4)
  - Encephalitis [Unknown]
  - Neurological symptom [Unknown]
  - CSF test abnormal [Unknown]
  - Opportunistic infection [Unknown]
